FAERS Safety Report 8816620 (Version 1)
Quarter: 2012Q4

REPORT INFORMATION
  Report Type: Spontaneous
  Country: US (occurrence: None)
  Receive Date: 20121001
  Receipt Date: 20121001
  Transmission Date: 20130627
  Serious: Yes (Other)
  Sender: FDA-Public Use
  Company Number: None

PATIENT
  Sex: Male

DRUGS (1)
  1. VICTRELIS [Suspect]
     Indication: HEPATITIS C
     Dosage: 200 mg- take 4 caps tid po
     Route: 048
     Dates: start: 20120601

REACTIONS (5)
  - Pollakiuria [None]
  - Limb discomfort [None]
  - Dyspnoea [None]
  - Headache [None]
  - Sinusitis [None]
